FAERS Safety Report 5567412-4 (Version None)
Quarter: 2007Q4

REPORT INFORMATION
  Report Type: 
  Country: None (occurrence: None)
  Receive Date: 20071214
  Receipt Date: 20071128
  Transmission Date: 20080405
  Serious: Yes (Other)
  Sender: FDA-Public Use
  Company Number: GRP07000193

PATIENT
  Age: 68 Year
  Sex: Female
  Weight: 51.6 kg

DRUGS (2)
  1. ACTONEL [Suspect]
     Indication: OSTEOPOROSIS
     Dosage: 35 MG, 1/WEEK, ORAL
     Route: 048
  2. ASPIRIN PLUS C (ASCORBIC ACID, ACETYLSALICYLIC ACID) [Concomitant]

REACTIONS (3)
  - ABDOMINAL PAIN LOWER [None]
  - C-REACTIVE PROTEIN INCREASED [None]
  - COLITIS ISCHAEMIC [None]
